FAERS Safety Report 9748380 (Version 2)
Quarter: 2013Q4

REPORT INFORMATION
  Report Type: Report from Study
  Country: DE (occurrence: DE)
  Receive Date: 20131212
  Receipt Date: 20131212
  Transmission Date: 20140711
  Serious: Yes (Hospitalization)
  Sender: FDA-Public Use
  Company Number: DE-JNJFOC-20130905247

PATIENT
  Age: 50 Year
  Sex: Female
  Weight: 90 kg

DRUGS (6)
  1. YONDELIS [Suspect]
     Indication: OVARIAN CANCER
     Dosage: CYCLE 1
     Route: 042
     Dates: start: 20130823, end: 20130823
  2. CAELYX [Suspect]
     Indication: OVARIAN CANCER
     Dosage: CYCLE 1
     Route: 042
     Dates: start: 20130823
  3. DEXAMETHASONE [Concomitant]
     Indication: PREMEDICATION
     Route: 065
  4. ONDANSETRON [Concomitant]
     Indication: PREMEDICATION
     Route: 065
  5. RANITIDINE [Concomitant]
     Indication: PREMEDICATION
     Route: 065
  6. TAVEGIL [Concomitant]
     Indication: PREMEDICATION
     Route: 065

REACTIONS (1)
  - Pancytopenia [Recovered/Resolved]
